FAERS Safety Report 10974371 (Version 1)
Quarter: 2015Q2

REPORT INFORMATION
  Report Type: Spontaneous
  Country: GB (occurrence: GB)
  Receive Date: 20150401
  Receipt Date: 20150401
  Transmission Date: 20150821
  Serious: Yes (Disabling)
  Sender: FDA-Public Use
  Company Number: GB-TEVA-551141ACC

PATIENT
  Age: 93 Year
  Sex: Female
  Weight: 73 kg

DRUGS (16)
  1. BISOPROLOL [Concomitant]
     Active Substance: BISOPROLOL
     Dosage: 1 DOSAGE FORMS DAILY; 1 DOSAGE FORMS, IN THE MORNING
     Dates: start: 20141208
  2. FELDENE [Concomitant]
     Active Substance: PIROXICAM
     Dosage: APPLY AS DIRECTED
     Dates: start: 20150120, end: 20150217
  3. LACTULOSE. [Concomitant]
     Active Substance: LACTULOSE
     Dosage: 10-15ML TWICE DAILY
     Dates: start: 20150120, end: 20150214
  4. BENDROFLUMETHIAZIDE [Concomitant]
     Active Substance: BENDROFLUMETHIAZIDE
     Dosage: 1 DOSAGE FORMS DAILY; 1 DOSAGE FORMS, EACH MORNING
     Dates: start: 20141208
  5. SALBUTAMOL [Concomitant]
     Active Substance: ALBUTEROL
     Route: 055
     Dates: start: 20150204, end: 20150304
  6. LACTULOSE. [Concomitant]
     Active Substance: LACTULOSE
     Dosage: 10-15ML TWICE DAILY
     Dates: start: 20150310
  7. ATORVASTATIN [Concomitant]
     Active Substance: ATORVASTATIN
     Dosage: 1 DOSAGE FORMS DAILY;
     Dates: start: 20141208
  8. CLOPIDOGREL [Concomitant]
     Active Substance: CLOPIDOGREL BISULFATE
     Dosage: 1 DOSAGE FORMS DAILY;
     Dates: start: 20141208
  9. FELDENE [Concomitant]
     Active Substance: PIROXICAM
     Dosage: APPLY AS DIRECTED
     Dates: start: 20150310
  10. ASPIRIN. [Concomitant]
     Active Substance: ASPIRIN
     Dosage: 1 DOSAGE FORMS DAILY;
     Dates: start: 20141208
  11. BUPRENORPHINE [Concomitant]
     Active Substance: BUPRENORPHINE
     Dosage: APPLY ONE PATCH EVERY WEEK (FRIDAY)
     Route: 062
     Dates: start: 20140818
  12. OMEPRAZOLE. [Concomitant]
     Active Substance: OMEPRAZOLE
     Dosage: 1 DOSAGE FORMS DAILY; 1 DOSAGE FORMS, ONE TO BE TAKEN DAILY
     Dates: start: 20141208
  13. ISOSORBIDE MONONITRATE. [Concomitant]
     Active Substance: ISOSORBIDE MONONITRATE
     Dosage: 1 DOSAGE FORMS DAILY;
     Dates: start: 20141208, end: 20150226
  14. PARACETAMOL [Concomitant]
     Active Substance: ACETAMINOPHEN
     Dosage: 8 DOSAGE FORMS DAILY;
     Dates: start: 20141208, end: 20150226
  15. AMOXICILLIN. [Suspect]
     Active Substance: AMOXICILLIN
     Dosage: 3 DOSAGE FORMS DAILY;
     Dates: start: 20150312
  16. LOSARTAN [Concomitant]
     Active Substance: LOSARTAN
     Dosage: 1 DOSAGE FORMS DAILY; 1 DOSAGE FORMS, TAKE ONE DAILY
     Dates: start: 20141208

REACTIONS (2)
  - Malaise [Recovered/Resolved]
  - Vomiting [Recovered/Resolved]

NARRATIVE: CASE EVENT DATE: 20150312
